FAERS Safety Report 24246308 (Version 1)
Quarter: 2024Q3

REPORT INFORMATION
  Report Type: Other
  Country: US (occurrence: US)
  Receive Date: 20240825
  Receipt Date: 20240825
  Transmission Date: 20241017
  Serious: Yes (Other)
  Sender: DEXCEL
  Company Number: US-DEXPHARM-2024-2868

PATIENT
  Age: 57 Year
  Sex: Female

DRUGS (15)
  1. OLANZAPINE [Interacting]
     Active Substance: OLANZAPINE
  2. PACLITAXEL [Concomitant]
     Active Substance: PACLITAXEL
     Indication: Breast cancer
  3. DEXAMETHASONE [Interacting]
     Active Substance: DEXAMETHASONE
     Indication: Breast cancer
  4. LOPERAMIDE [Concomitant]
     Active Substance: LOPERAMIDE
  5. DOXORUBICIN [Concomitant]
     Active Substance: DOXORUBICIN
     Indication: Breast cancer
     Dosage: BIWEEKLY DOXORUBICIN
  6. CYCLOPHOSPHAMIDE [Concomitant]
     Active Substance: CYCLOPHOSPHAMIDE
     Indication: Breast cancer
  7. METFORMIN [Concomitant]
     Active Substance: METFORMIN HYDROCHLORIDE
  8. OMEPRAZOLE [Concomitant]
     Active Substance: OMEPRAZOLE
  9. ONDANSETRON [Concomitant]
     Active Substance: ONDANSETRON
  10. CYCLOBENZAPRINE [Concomitant]
     Active Substance: CYCLOBENZAPRINE
  11. PROCHLORPERAZINE [Concomitant]
     Active Substance: PROCHLORPERAZINE
  12. HYDROXYZINE [Concomitant]
     Active Substance: HYDROXYZINE HYDROCHLORIDE
  13. IBUPROFEN [Concomitant]
     Active Substance: IBUPROFEN
  14. TRAMADOL [Concomitant]
     Active Substance: TRAMADOL\TRAMADOL HYDROCHLORIDE
  15. METOPROLOL [Concomitant]
     Active Substance: METOPROLOL

REACTIONS (3)
  - Dyslipidaemia [Recovering/Resolving]
  - Hyperglycaemia [Unknown]
  - Drug interaction [Unknown]
